FAERS Safety Report 7587826-0 (Version None)
Quarter: 2011Q3

REPORT INFORMATION
  Report Type: 
  Country: None (occurrence: None)
  Receive Date: 20110705
  Receipt Date: 20110623
  Transmission Date: 20111222
  Serious: No
  Sender: FDA-Public Use
  Company Number: US-BIOGENIDEC-2011BI023247

PATIENT
  Sex: Female

DRUGS (1)
  1. TYSABRI [Suspect]
     Indication: MULTIPLE SCLEROSIS
     Route: 042
     Dates: start: 20080225

REACTIONS (7)
  - SENSATION OF HEAVINESS [None]
  - MOBILITY DECREASED [None]
  - TREMOR [None]
  - MUSCULOSKELETAL DISORDER [None]
  - MULTIPLE SCLEROSIS [None]
  - TINNITUS [None]
  - STRESS [None]
